FAERS Safety Report 16391961 (Version 1)
Quarter: 2019Q2

REPORT INFORMATION
  Report Type: Spontaneous
  Country: ES (occurrence: ES)
  Receive Date: 20190605
  Receipt Date: 20190605
  Transmission Date: 20190711
  Serious: Yes (Death, Hospitalization)
  Sender: FDA-Public Use
  Company Number: ES-ROCHE-2326738

PATIENT
  Age: 41 Year
  Sex: Female

DRUGS (6)
  1. DOCETAXEL. [Interacting]
     Active Substance: DOCETAXEL
     Indication: BREAST CANCER
     Dosage: 125 MG
     Route: 042
     Dates: start: 20180223, end: 20180223
  2. CARBOPLATINO [Interacting]
     Active Substance: CARBOPLATIN
     Indication: BREAST CANCER
     Dosage: 590 MG
     Route: 042
     Dates: start: 20180223, end: 20180223
  3. TRASTUZUMAB. [Suspect]
     Active Substance: TRASTUZUMAB
     Indication: BREAST CANCER
     Dosage: 455 MG (23/02 DOSIS DE CARGA)
     Route: 041
     Dates: start: 20180223, end: 20180223
  4. IVEMEND [Concomitant]
     Active Substance: FOSAPREPITANT DIMEGLUMINE
     Route: 065
     Dates: start: 20180223, end: 20180223
  5. FORTECORTIN [DEXAMETHASONE] [Concomitant]
     Active Substance: DEXAMETHASONE
     Route: 048
     Dates: start: 20180222, end: 20180225
  6. DEXAMETASONA [DEXAMETHASONE] [Concomitant]
     Dosage: 12 MG DIA
     Route: 065
     Dates: start: 20180223, end: 20180223

REACTIONS (4)
  - Drug interaction [Fatal]
  - Agranulocytosis [Fatal]
  - Large intestine perforation [Fatal]
  - Colitis [Fatal]

NARRATIVE: CASE EVENT DATE: 20180302
